FAERS Safety Report 6370105-7 (Version None)
Quarter: 2009Q3

REPORT INFORMATION
  Report Type: 
  Country: None (occurrence: None)
  Receive Date: 20090923
  Receipt Date: 20070828
  Transmission Date: 20100115
  Serious: No
  Sender: FDA-Public Use
  Company Number: US-ASTRAZENECA-2006UW12199

PATIENT
  Age: 351 Month
  Sex: Male
  Weight: 101.6 kg

DRUGS (10)
  1. SEROQUEL [Suspect]
     Indication: BIPOLAR DISORDER
     Dosage: 50 - 200 MG
     Route: 048
     Dates: start: 20020718, end: 20060710
  2. SEROQUEL [Suspect]
     Indication: SLEEP DISORDER
     Dosage: 50 - 200 MG
     Route: 048
     Dates: start: 20020718, end: 20060710
  3. ZYPREXA [Suspect]
     Dates: start: 19990101, end: 20030101
  4. GEODON [Concomitant]
     Dates: start: 20030101
  5. DEPAKOTE [Concomitant]
  6. NEURONTIN [Concomitant]
  7. LAMICTAL [Concomitant]
  8. LEXAPRO [Concomitant]
  9. CELEXA [Concomitant]
     Route: 048
     Dates: start: 20020725
  10. LIPITOR [Concomitant]
     Route: 048
     Dates: start: 20040909

REACTIONS (5)
  - BLOOD CHOLESTEROL INCREASED [None]
  - BLOOD TRIGLYCERIDES INCREASED [None]
  - DIABETES MELLITUS [None]
  - OBESITY [None]
  - TYPE 2 DIABETES MELLITUS [None]
